FAERS Safety Report 20966051 (Version 1)
Quarter: 2022Q2

REPORT INFORMATION
  Report Type: Other
  Country: CN (occurrence: CN)
  Receive Date: 20220616
  Receipt Date: 20220616
  Transmission Date: 20220721
  Serious: Yes (Other)
  Sender: FDA-Public Use
  Company Number: CN-002147023-NVSC2022CN135298

PATIENT

DRUGS (3)
  1. LUCENTIS [Suspect]
     Active Substance: RANIBIZUMAB
     Indication: Retinopathy of prematurity
     Dosage: 0.025 ML, UNKNOWN WITHIN 48 HOURS OF DIAGNOSIS
     Route: 031
  2. TOBRADEX [Concomitant]
     Active Substance: DEXAMETHASONE\TOBRAMYCIN
     Indication: Product used for unknown indication
     Dosage: UNK
     Route: 065
  3. BENOXINATE [Concomitant]
     Active Substance: BENOXINATE
     Indication: Anaesthesia eye
     Dosage: UNK
     Route: 065

REACTIONS (1)
  - Retinopathy of prematurity [Unknown]
